FAERS Safety Report 8676156 (Version 2)
Quarter: 2013Q4

REPORT INFORMATION
  Report Type: Spontaneous
  Country: US (occurrence: US)
  Receive Date: 20120720
  Receipt Date: 20131101
  Transmission Date: 20140711
  Serious: No
  Sender: FDA-Public Use
  Company Number: US-009507513-1207USA005573

PATIENT
  Sex: Female

DRUGS (2)
  1. MIRALAX [Suspect]
     Indication: PRODUCT USED FOR UNKNOWN INDICATION
     Dosage: 7.5 G, ONCE
     Route: 048
     Dates: start: 201205, end: 201205
  2. MIRALAX [Suspect]
     Indication: MEDICAL OBSERVATION
     Dosage: 7.5 G, ONCE
     Route: 048
     Dates: start: 20120523

REACTIONS (3)
  - Abdominal pain upper [Unknown]
  - Feeling abnormal [Unknown]
  - Underdose [Unknown]
